FAERS Safety Report 6014764-7 (Version None)
Quarter: 2008Q4

REPORT INFORMATION
  Report Type: 
  Country: None (occurrence: None)
  Receive Date: 20081219
  Receipt Date: 20081217
  Transmission Date: 20090506
  Serious: Yes (Other)
  Sender: FDA-Public Use
  Company Number: FR-WYE-G02806008

PATIENT
  Age: 46 Year
  Sex: Male

DRUGS (1)
  1. RAPAMUNE [Suspect]
     Indication: PROPHYLAXIS AGAINST TRANSPLANT REJECTION
     Dosage: UNKNOWN
     Route: 048
     Dates: start: 20070101, end: 20080101

REACTIONS (4)
  - ANTIBODY TEST POSITIVE [None]
  - HYPERCHOLESTEROLAEMIA [None]
  - PROTEINURIA [None]
  - THROMBOPHLEBITIS [None]
